FAERS Safety Report 26145374 (Version 1)
Quarter: 2025Q4

REPORT INFORMATION
  Report Type: Spontaneous
  Country: US (occurrence: US)
  Receive Date: 20251211
  Receipt Date: 20251211
  Transmission Date: 20260117
  Serious: No
  Sender: MYLAN
  Company Number: US-MYLANLABS-2025M1104880

PATIENT
  Age: 69 Year
  Sex: Female

DRUGS (4)
  1. CELECOXIB [Suspect]
     Active Substance: CELECOXIB
     Indication: Product used for unknown indication
     Dosage: 100 MILLIGRAM, QD (DAILY)
     Dates: start: 20250421
  2. CELECOXIB [Suspect]
     Active Substance: CELECOXIB
     Dosage: 100 MILLIGRAM, QD (DAILY)
     Route: 048
     Dates: start: 20250421
  3. CELECOXIB [Suspect]
     Active Substance: CELECOXIB
     Dosage: 100 MILLIGRAM, QD (DAILY)
     Route: 048
     Dates: start: 20250421
  4. CELECOXIB [Suspect]
     Active Substance: CELECOXIB
     Dosage: 100 MILLIGRAM, QD (DAILY)
     Dates: start: 20250421

REACTIONS (1)
  - Intentional product misuse [Unknown]

NARRATIVE: CASE EVENT DATE: 20250421
